FAERS Safety Report 7020508-2 (Version None)
Quarter: 2010Q3

REPORT INFORMATION
  Report Type: 
  Country: None (occurrence: None)
  Receive Date: 20100929
  Receipt Date: 20100916
  Transmission Date: 20110219
  Serious: Yes (Other)
  Sender: FDA-Public Use
  Company Number: DE-ROCHE-729191

PATIENT
  Sex: Female

DRUGS (4)
  1. AVASTIN [Suspect]
     Route: 065
     Dates: start: 20100501, end: 20100916
  2. TAXOTERE [Suspect]
     Route: 065
     Dates: start: 20100501, end: 20100916
  3. DEXAMETASONE [Concomitant]
     Dates: start: 20100501
  4. GRANOZYTE [Concomitant]

REACTIONS (1)
  - SYSTEMIC LUPUS ERYTHEMATOSUS RASH [None]
